FAERS Safety Report 7670424-8 (Version None)
Quarter: 2011Q3

REPORT INFORMATION
  Report Type: 
  Country: None (occurrence: None)
  Receive Date: 20110809
  Receipt Date: 20110728
  Transmission Date: 20111222
  Serious: No
  Sender: FDA-Public Use
  Company Number: US-BIOGENIDEC-2011BI028454

PATIENT
  Sex: Male

DRUGS (1)
  1. TYSABRI [Suspect]
     Indication: MULTIPLE SCLEROSIS
     Route: 042
     Dates: start: 20090709

REACTIONS (6)
  - ASTHENIA [None]
  - FATIGUE [None]
  - BACK PAIN [None]
  - PAIN IN EXTREMITY [None]
  - DRUG SPECIFIC ANTIBODY PRESENT [None]
  - BALANCE DISORDER [None]
